FAERS Safety Report 6613467-5 (Version None)
Quarter: 2010Q1

REPORT INFORMATION
  Report Type: 
  Country: None (occurrence: None)
  Receive Date: 20100304
  Receipt Date: 20100226
  Transmission Date: 20100710
  Serious: Yes (Other)
  Sender: FDA-Public Use
  Company Number: US-B.I. PHARMACEUTICALS,INC./RIDGEFIELD-2007-BP-06621BP

PATIENT
  Sex: Male

DRUGS (22)
  1. SPIRIVA [Suspect]
     Indication: CHRONIC OBSTRUCTIVE PULMONARY DISEASE
     Dosage: 18 MCG
     Route: 055
     Dates: start: 20070101, end: 20070512
  2. SPIRIVA [Suspect]
     Indication: BRONCHITIS CHRONIC
     Dosage: 36 MCG
     Route: 055
  3. AVANDAMET [Concomitant]
     Indication: DIABETES MELLITUS
     Route: 048
  4. DIOVAN HCT [Concomitant]
     Indication: HYPERTENSION
     Route: 048
  5. FENOFIBRATE [Concomitant]
     Indication: BLOOD CHOLESTEROL
     Route: 048
  6. ADVAIR DISKUS 100/50 [Concomitant]
     Indication: CHRONIC OBSTRUCTIVE PULMONARY DISEASE
     Route: 055
  7. NITROSTAT [Concomitant]
     Indication: ANGINA PECTORIS
     Route: 048
  8. WARFARIN SODIUM [Concomitant]
     Indication: ANTICOAGULANT THERAPY
     Route: 048
  9. FIBERCON [Concomitant]
     Indication: GASTRIC POLYPS
     Route: 048
  10. FIBERCON [Concomitant]
     Indication: PROPHYLAXIS
  11. CENTRUM SILVER [Concomitant]
     Route: 048
  12. DUONEB [Concomitant]
     Indication: CHRONIC OBSTRUCTIVE PULMONARY DISEASE
     Route: 055
  13. GUAIFENESIN [Concomitant]
     Indication: PULMONARY CONGESTION
     Route: 048
  14. COMBIVENT [Concomitant]
     Indication: BRONCHITIS CHRONIC
  15. ALBUTEROL [Concomitant]
     Indication: BRONCHITIS CHRONIC
  16. MOBIC [Concomitant]
     Indication: ARTHRITIS
  17. ASPIRIN [Concomitant]
     Indication: PROPHYLAXIS
  18. VITAMINS [Concomitant]
     Indication: PROPHYLAXIS
  19. GLUCOPHAGE [Concomitant]
     Indication: DIABETES MELLITUS
  20. FENAGLIDE [Concomitant]
     Indication: BLOOD TRIGLYCERIDES INCREASED
  21. POTASSIUM CHLORIDE [Concomitant]
     Indication: PROPHYLAXIS
  22. MUCINEX [Concomitant]
     Indication: BRONCHITIS CHRONIC

REACTIONS (14)
  - CONSTIPATION [None]
  - DACRYOSTENOSIS ACQUIRED [None]
  - DRY MOUTH [None]
  - EYE PAIN [None]
  - HEMICEPHALALGIA [None]
  - INAPPROPRIATE SCHEDULE OF DRUG ADMINISTRATION [None]
  - INTRAOCULAR PRESSURE INCREASED [None]
  - LUNG NEOPLASM [None]
  - NEOPLASM PROSTATE [None]
  - OEDEMA PERIPHERAL [None]
  - PROSTATOMEGALY [None]
  - RENAL NEOPLASM [None]
  - URINARY INCONTINENCE [None]
  - URINE FLOW DECREASED [None]
